FAERS Safety Report 5404042-9 (Version None)
Quarter: 2007Q3

REPORT INFORMATION
  Report Type: 
  Country: None (occurrence: None)
  Receive Date: 20070802
  Receipt Date: 20070724
  Transmission Date: 20080115
  Serious: Yes (Hospitalization)
  Sender: FDA-Public Use
  Company Number: AT-ASTRAZENECA-2006PK00281

PATIENT
  Age: 63 Year
  Sex: Female

DRUGS (18)
  1. SEROQUEL [Suspect]
     Route: 048
     Dates: start: 20050712, end: 20050712
  2. SEROQUEL [Suspect]
     Route: 048
     Dates: start: 20050713, end: 20050713
  3. SEROQUEL [Suspect]
     Route: 048
     Dates: start: 20050714, end: 20050802
  4. SEROQUEL [Suspect]
     Route: 048
     Dates: start: 20050803, end: 20050811
  5. DOMINAL FORTE [Concomitant]
     Dates: start: 20050711, end: 20050714
  6. FORLAX [Concomitant]
     Dates: start: 20050711, end: 20050717
  7. FORLAX [Concomitant]
     Dates: start: 20050718, end: 20050721
  8. NEXIUM [Concomitant]
     Dates: start: 20050711, end: 20050917
  9. ATORVASTATIN CALCIUM [Concomitant]
     Dates: start: 20050711, end: 20050714
  10. LORAZEPAM [Concomitant]
     Route: 048
     Dates: start: 20050711, end: 20050713
  11. LORAZEPAM [Concomitant]
     Route: 048
     Dates: start: 20050714, end: 20050719
  12. LORAZEPAM [Concomitant]
     Route: 048
     Dates: start: 20050720, end: 20050722
  13. LORAZEPAM [Concomitant]
     Route: 048
     Dates: start: 20050723, end: 20050727
  14. AKINETON RET [Concomitant]
     Route: 048
     Dates: start: 20050711, end: 20050713
  15. AKINETON RET [Concomitant]
     Route: 048
     Dates: start: 20050714, end: 20050717
  16. AKINETON RET [Concomitant]
     Route: 048
     Dates: start: 20050718, end: 20050720
  17. DELPRAL [Concomitant]
     Route: 048
     Dates: start: 20050713, end: 20050719
  18. DELPRAL [Concomitant]
     Route: 048
     Dates: start: 20050720

REACTIONS (1)
  - DIZZINESS [None]
